FAERS Safety Report 4402260-X (Version None)
Quarter: 2004Q3

REPORT INFORMATION
  Report Type: 
  Country: None (occurrence: None)
  Receive Date: 20040715
  Receipt Date: 20040707
  Transmission Date: 20050211
  Serious: Yes (Life-Threatening, Hospitalization)
  Sender: FDA-Public Use
  Company Number: WAES 0407DEU00070

PATIENT
  Age: 72 Year
  Sex: Male

DRUGS (8)
  1. COZAAR [Suspect]
     Dosage: 50 MG/DAILY PO
     Route: 048
     Dates: start: 20040606, end: 20040608
  2. DIGITOXIN TAB [Concomitant]
  3. FUROSEMIDE [Concomitant]
  4. MOLSIDOMINE [Concomitant]
  5. PHENPROCOUMON [Concomitant]
  6. PRAVASTATIN SODIUM [Concomitant]
  7. SOTALOL HYDROCHLORIDE [Concomitant]
  8. SPIRONOLACTONE [Concomitant]

REACTIONS (2)
  - LEFT VENTRICULAR FAILURE [None]
  - PNEUMONIA [None]
